FAERS Safety Report 10485026 (Version 4)
Quarter: 2014Q4

REPORT INFORMATION
  Report Type: Spontaneous
  Country: US (occurrence: US)
  Receive Date: 20140930
  Receipt Date: 20141229
  Transmission Date: 20150528
  Serious: No
  Sender: FDA-Public Use
  Company Number: US-PFIZER INC-2014269915

PATIENT
  Age: 56 Year
  Sex: Female
  Weight: 90.7 kg

DRUGS (3)
  1. XANAX [Suspect]
     Active Substance: ALPRAZOLAM
     Indication: MIGRAINE
     Dosage: 0.25 MG, EVERY 6 HOURS AS NEEDED
     Dates: start: 20140610
  2. ADDERALL [Concomitant]
     Active Substance: AMPHETAMINE ASPARTATE\AMPHETAMINE SULFATE\DEXTROAMPHETAMINE SACCHARATE\DEXTROAMPHETAMINE SULFATE
     Indication: ATTENTION DEFICIT/HYPERACTIVITY DISORDER
     Dosage: 30 MG, THREE TIMES A DAY
     Dates: start: 20140729
  3. XANAX [Suspect]
     Active Substance: ALPRAZOLAM
     Dosage: 2 DF (2X 0.05), EVERY 4 HRS
     Route: 048
     Dates: start: 20140610, end: 20140731

REACTIONS (1)
  - Drug screen false positive [Unknown]

NARRATIVE: CASE EVENT DATE: 20140804
